FAERS Safety Report 23779165 (Version 4)
Quarter: 2024Q3

REPORT INFORMATION
  Report Type: Spontaneous
  Country: CA (occurrence: CA)
  Receive Date: 20240424
  Receipt Date: 20240724
  Transmission Date: 20241017
  Serious: Yes (Other)
  Sender: BAXTER
  Company Number: CA-BAXTER-2024BAX017087

PATIENT
  Age: 61 Year
  Sex: Female

DRUGS (176)
  1. ACETAMINOPHEN [Suspect]
     Active Substance: ACETAMINOPHEN
     Indication: Product used for unknown indication
     Dosage: (DOSAGE FORM: NOT SPECIFIED) 1 DOSAGE FORM 1 EVERY 1 DAY
     Route: 065
  2. FUROSEMIDE [Suspect]
     Active Substance: FUROSEMIDE
     Indication: Product used for unknown indication
     Dosage: (DOSAGE FORM: NOT SPECIFIED) AT AN UNSPECIFIED DOSE AND FREQUENCY
     Route: 065
  3. ACETAMINOPHEN [Suspect]
     Active Substance: ACETAMINOPHEN
     Indication: Product used for unknown indication
     Dosage: 2 DOSAGE FORMS 1 EVERY 6 HOURS
     Route: 065
  4. ACETAMINOPHEN [Suspect]
     Active Substance: ACETAMINOPHEN
     Dosage: 1 DOSAGE FORMS 1 EVERY 1 DAYS
     Route: 065
  5. ACETAMINOPHEN [Suspect]
     Active Substance: ACETAMINOPHEN
     Dosage: 2.0 DOSAGE FORMS 1 EVERY 8 HOURS (DOSAGE FORM: TABLET)
     Route: 065
  6. ACETAMINOPHEN [Suspect]
     Active Substance: ACETAMINOPHEN
     Dosage: 2.0 DOSAGE FORMS UNSPECIFIED FREQUENCY (DOSAGE FORM: TABLET)
     Route: 065
  7. ADVAIR HFA [Suspect]
     Active Substance: FLUTICASONE PROPIONATE\SALMETEROL XINAFOATE
     Indication: Product used for unknown indication
     Dosage: 2 DOSAGE FORMS 1 EVERY 12 HOURS
  8. ADVAIR HFA [Suspect]
     Active Substance: FLUTICASONE PROPIONATE\SALMETEROL XINAFOATE
     Dosage: (DOSAGE FORM: NOT SPECIFIED) 1 DOSAGE FORM 1 EVERY 12 HOURS
     Route: 065
  9. ADVAIR HFA [Suspect]
     Active Substance: FLUTICASONE PROPIONATE\SALMETEROL XINAFOATE
     Dosage: 2 DOSAGE FORMS 1 EVERY 12 HOURS
     Route: 065
  10. ADVAIR HFA [Suspect]
     Active Substance: FLUTICASONE PROPIONATE\SALMETEROL XINAFOATE
     Dosage: 1 DOSAGE FORM 1 EVERY 12 HOURS
     Route: 065
  11. ADVAIR HFA [Suspect]
     Active Substance: FLUTICASONE PROPIONATE\SALMETEROL XINAFOATE
     Dosage: (DOSAGE FORM: NOT SPECIFIED) 1 DOSAGE FORM 2 EVERY 1 DAYS
     Route: 065
  12. ADVAIR HFA [Suspect]
     Active Substance: FLUTICASONE PROPIONATE\SALMETEROL XINAFOATE
     Dosage: (DOSAGE FORM: NOT SPECIFIED) 2 DOSAGE FORM 2 EVERY 1 DAYS (THERAPY DURATION: 30.0 DAYS)
     Route: 065
  13. ADVAIR HFA [Suspect]
     Active Substance: FLUTICASONE PROPIONATE\SALMETEROL XINAFOATE
     Dosage: (DOSAGE FORM: NOT SPECIFIED) 1 DOSAGE FORM 2 EVERY 1 DAYS (THERAPY DURATION: 30.0 DAYS)
     Route: 065
  14. AMITRIPTYLINE HYDROCHLORIDE [Suspect]
     Active Substance: AMITRIPTYLINE HYDROCHLORIDE
     Indication: Product used for unknown indication
     Dosage: 4 DOSAGE FORMS 1 EVERY 1 DAY
     Route: 065
  15. AMITRIPTYLINE HYDROCHLORIDE [Suspect]
     Active Substance: AMITRIPTYLINE HYDROCHLORIDE
     Indication: Product used for unknown indication
     Dosage: 4 DOSAGE FORMS 1 EVERY 1 DAY
     Route: 065
  16. ACETAMINOPHEN [Suspect]
     Active Substance: ACETAMINOPHEN
     Indication: Product used for unknown indication
     Dosage: 1 DOSAGE FORM 1 EVERY 1 DAY
     Route: 065
  17. ACETAMINOPHEN [Suspect]
     Active Substance: ACETAMINOPHEN
     Dosage: 2 DOSAGE FORMS 1 EVERY 8 HOURS
     Route: 065
  18. ACETAMINOPHEN [Suspect]
     Active Substance: ACETAMINOPHEN
     Dosage: 2 DOSAGE FORMS
     Route: 065
  19. ACETAMINOPHEN [Suspect]
     Active Substance: ACETAMINOPHEN
     Dosage: 2 DOSAGE FORMS 1 EVERY 6 HOURS
     Route: 065
  20. ATORVASTATIN CALCIUM [Suspect]
     Active Substance: ATORVASTATIN CALCIUM
     Indication: Product used for unknown indication
     Dosage: 1 DOSAGE FORM 1 EVERY DAY
     Route: 065
  21. FUROSEMIDE [Suspect]
     Active Substance: FUROSEMIDE
     Indication: Product used for unknown indication
     Dosage: AT AN UNSPECIFIED DOSE AND FREQUENCY (DOSAGE FORM: TABLET)
     Route: 065
  22. PREDNISONE [Suspect]
     Active Substance: PREDNISONE
     Indication: Product used for unknown indication
     Dosage: 4 DOSAGE FORMS 1 EVERY 1 DAY
     Route: 065
  23. PREDNISONE [Suspect]
     Active Substance: PREDNISONE
     Dosage: 2 DOSAGE FORMS 1 EVERY 1 DAY
     Route: 065
  24. PREDNISONE [Suspect]
     Active Substance: PREDNISONE
     Dosage: 1 DOSAGE FORM 1 EVERY 1 DAY
     Route: 065
  25. PREDNISONE [Suspect]
     Active Substance: PREDNISONE
     Dosage: 3 DOSAGE FORMS 1 EVERY 1 DAY
     Route: 065
  26. ATORVASTATIN CALCIUM [Suspect]
     Active Substance: ATORVASTATIN CALCIUM
     Indication: Product used for unknown indication
     Dosage: 1 DOSAGE FORM
     Route: 065
  27. ATORVASTATIN CALCIUM [Suspect]
     Active Substance: ATORVASTATIN CALCIUM
     Dosage: 1 DOSAGE FORM 1 EVERY 1 DAY
     Route: 065
  28. ATORVASTATIN CALCIUM [Suspect]
     Active Substance: ATORVASTATIN CALCIUM
     Indication: Product used for unknown indication
     Dosage: (DOSAGE FORM: NOT SPECIFIED) 1 DOSAGE FORM 1 EVERY 1 DAY
     Route: 065
  29. AZITHROMYCIN [Suspect]
     Active Substance: AZITHROMYCIN
     Indication: Product used for unknown indication
     Dosage: 3 DOSAGE FORMS AT AN UNSPECIFIED FREQUENCY
     Route: 065
  30. AZITHROMYCIN [Suspect]
     Active Substance: AZITHROMYCIN
     Dosage: (DOSAGE FORM: NOT SPECIFIED) 3 DOSAGE FORMS
     Route: 065
  31. BETAMETHASONE VALERATE [Suspect]
     Active Substance: BETAMETHASONE VALERATE
     Indication: Eczema
     Dosage: AT AN UNSPECIFIED DOSE AND FREQUENCY
     Route: 065
  32. CARBAMAZEPINE [Suspect]
     Active Substance: CARBAMAZEPINE
     Indication: Product used for unknown indication
     Dosage: (DOSAGE FORM: NOT SPECIFIED) 1 DOSAGE FORM 1 EVERY 8 HOURS
     Route: 065
  33. COMBIVENT [Suspect]
     Active Substance: ALBUTEROL SULFATE\IPRATROPIUM BROMIDE
     Indication: Product used for unknown indication
     Dosage: (DOSAGE FORM: SOLUTION INHALATION) AT AN UNSPECIFIED DOSE AND FREQUENCY
     Route: 065
  34. CYANOCOBALAMIN [Suspect]
     Active Substance: CYANOCOBALAMIN
     Indication: Product used for unknown indication
     Dosage: 1.0 ML AT AN UNSPECIFIED FREQUENCY
     Route: 042
  35. CYANOCOBALAMIN [Suspect]
     Active Substance: CYANOCOBALAMIN
     Dosage: (DOSAGE FORM: NOT SPECIFIED) 1.0 ML
     Route: 042
  36. DIBUCAINE HYDROCHLORIDE [Suspect]
     Active Substance: DIBUCAINE HYDROCHLORIDE
     Indication: Product used for unknown indication
     Dosage: 1 DOSAGE FORM 1 EVERY 12 HOURS
     Route: 065
  37. DIBUCAINE HYDROCHLORIDE [Suspect]
     Active Substance: DIBUCAINE HYDROCHLORIDE
     Dosage: 1 DOSAGE FORM 1 EVERY 1 DAY
     Route: 065
  38. DIBUCAINE HYDROCHLORIDE [Suspect]
     Active Substance: DIBUCAINE HYDROCHLORIDE
     Dosage: AT AN UNSPECIFIED DOSE AND FREQUENCY
     Route: 065
  39. DIBUCAINE HYDROCHLORIDE\HYDROCORTISONE [Suspect]
     Active Substance: DIBUCAINE HYDROCHLORIDE\HYDROCORTISONE
     Indication: Product used for unknown indication
     Dosage: 1 DOSAGE FORM 1 EVERY 1 DAY
     Route: 065
  40. DIBUCAINE HYDROCHLORIDE\HYDROCORTISONE [Suspect]
     Active Substance: DIBUCAINE HYDROCHLORIDE\HYDROCORTISONE
     Dosage: 1 DOSAGE FORM 1 EVERY 12 HOURS
     Route: 065
  41. PINAVERIUM BROMIDE [Suspect]
     Active Substance: PINAVERIUM BROMIDE
     Indication: Product used for unknown indication
     Dosage: AT AN UNSPECIFIED DOSE AND FREQUENCY
     Route: 065
  42. DILTIAZEM HYDROCHLORIDE [Suspect]
     Active Substance: DILTIAZEM HYDROCHLORIDE
     Indication: Product used for unknown indication
     Dosage: 1 DOSAGE FORM 1 EVERY 12 HOURS
     Route: 065
  43. DILTIAZEM HYDROCHLORIDE [Suspect]
     Active Substance: DILTIAZEM HYDROCHLORIDE
     Dosage: 1 DOSAGE FORM 1 EVERY 12 HOURS
     Route: 042
  44. DILTIAZEM HYDROCHLORIDE [Suspect]
     Active Substance: DILTIAZEM HYDROCHLORIDE
     Dosage: 1 DOSAGE FORM
     Route: 065
  45. DILTIAZEM HYDROCHLORIDE [Suspect]
     Active Substance: DILTIAZEM HYDROCHLORIDE
     Dosage: 1 DOSAGE FORM 1 EVERY 12 HOURS
     Route: 042
  46. DILTIAZEM HYDROCHLORIDE [Suspect]
     Active Substance: DILTIAZEM HYDROCHLORIDE
     Dosage: AT AN UNSPECIFIED DOSE AD FREQUENCY
     Route: 065
  47. DILTIAZEM HYDROCHLORIDE [Suspect]
     Active Substance: DILTIAZEM HYDROCHLORIDE
     Dosage: 1 DOSAGE FORM
     Route: 065
  48. DIMENHYDRINATE [Suspect]
     Active Substance: DIMENHYDRINATE
     Indication: Product used for unknown indication
     Dosage: (DOSAGE FORM: NOT SPECIFIED) AT AN UNSPECIFIED DOSE AND FREQUENCY
     Route: 065
  49. DIMENHYDRINATE [Suspect]
     Active Substance: DIMENHYDRINATE
     Dosage: AT AN UNSPECIFIED DOSE AND FREQUENCY
     Route: 065
  50. ESCULIN [Suspect]
     Active Substance: ESCULIN
     Indication: Product used for unknown indication
     Dosage: AT AN UNSPECIFIED DOSE AND FREQUENCY
     Route: 065
  51. FLOVENT [Suspect]
     Active Substance: FLUTICASONE PROPIONATE
     Indication: Product used for unknown indication
     Dosage: (DOSAGE FORM: NOT SPECIFIED) 2 DOSAGE FORMS 1 EVERY 12 HOURS
     Route: 065
  52. FLOVENT [Suspect]
     Active Substance: FLUTICASONE PROPIONATE
     Dosage: AT AN UNSPECIFIED DOSE AND FREQUENCY
     Route: 065
  53. FLUOXETINE [Suspect]
     Active Substance: FLUOXETINE HYDROCHLORIDE
     Indication: Product used for unknown indication
     Dosage: 2 DOSAGE FORMS 1 EVERY 12 HOURS
     Route: 065
  54. FLUOXETINE [Suspect]
     Active Substance: FLUOXETINE HYDROCHLORIDE
     Dosage: 2 DOSAGE FORMS AT ANNUNSPECIFIED FREQUENCY
     Route: 065
  55. FLUOXETINE [Suspect]
     Active Substance: FLUOXETINE HYDROCHLORIDE
     Dosage: UNK
     Route: 065
  56. FLUOXETINE [Suspect]
     Active Substance: FLUOXETINE HYDROCHLORIDE
     Indication: Product used for unknown indication
     Dosage: (DOSAGE FORM: NOT SPECIFIED) 2 DOSAGE FORMS 1 EVERY 12 HOURS
     Route: 065
  57. FLUOXETINE HYDROCHLORIDE [Suspect]
     Active Substance: FLUOXETINE HYDROCHLORIDE
     Indication: Product used for unknown indication
     Dosage: 1 DOSAGE FORM 1 EVERY 12 HOURS
     Route: 065
  58. FLUOXETINE HYDROCHLORIDE [Suspect]
     Active Substance: FLUOXETINE HYDROCHLORIDE
     Dosage: 2 DOSAGE FORMS 1 EVERY 12 HOURS
     Route: 065
  59. FLUOXETINE HYDROCHLORIDE [Suspect]
     Active Substance: FLUOXETINE HYDROCHLORIDE
     Dosage: 2 DOSAGE FORMS 1 EVERY 1 DAYS
     Route: 065
  60. FLUTICASONE PROPIONATE\SALMETEROL XINAFOATE [Suspect]
     Active Substance: FLUTICASONE PROPIONATE\SALMETEROL XINAFOATE
     Indication: Product used for unknown indication
     Dosage: 2 DOSAGE FORMS 1 EVERY 12 HOURS
  61. FLUTICASONE PROPIONATE\SALMETEROL XINAFOATE [Suspect]
     Active Substance: FLUTICASONE PROPIONATE\SALMETEROL XINAFOATE
     Dosage: 1 DOSAGE FORM 1 EVERY 12 HOURS
     Route: 065
  62. NITROGLYCERIN [Suspect]
     Active Substance: NITROGLYCERIN
     Indication: Angina pectoris
     Dosage: (DOSAGE FORM: NOT SPECIFIED) 1 DOSAGE FORM AT AN UNSPECIFIED FREQUENCY
     Route: 065
  63. NITROGLYCERIN [Suspect]
     Active Substance: NITROGLYCERIN
     Dosage: 1 DOSAGE FORM
     Route: 065
  64. CORTISONE [Suspect]
     Active Substance: CORTISONE
     Indication: Product used for unknown indication
     Dosage: AT AN UNSPECIFIED DOSE AND FREQUENCY (DOSAGE FORM: NOT SPECIFIED)
     Route: 065
  65. INSULIN ASPART [Suspect]
     Active Substance: INSULIN ASPART
     Indication: Product used for unknown indication
     Dosage: 3 DOSAGE FORMS 1 EVERY 1 DAY
     Route: 042
  66. INSULIN ASPART [Suspect]
     Active Substance: INSULIN ASPART
     Dosage: 3 DOSAGE FORMS 1 EVERY 1 DAY
     Route: 042
  67. INSULIN DEGLUDEC [Suspect]
     Active Substance: INSULIN DEGLUDEC
     Indication: Product used for unknown indication
     Dosage: 50 IU (INTERNATIONAL UNIT) 1 EVERY 1 DAY
     Route: 058
  68. IPRATROPIUM BROMIDE [Suspect]
     Active Substance: IPRATROPIUM BROMIDE\IPRATROPIUM BROMIDE ANHYDROUS
     Indication: Product used for unknown indication
     Dosage: UNK
     Route: 065
  69. LACTASE [Suspect]
     Active Substance: LACTASE
     Indication: Product used for unknown indication
     Dosage: 1 DOSAGE FORM 1 EVERY 8 HOURS
     Route: 065
  70. LACTASE [Suspect]
     Active Substance: LACTASE
     Dosage: 1 DOSAGE FORM 3 EVERY 1 DAY
     Route: 065
  71. LACTASE [Suspect]
     Active Substance: LACTASE
     Indication: Product used for unknown indication
     Dosage: 1 DOSAGE FORM 1 EVERY 8 HOURS (DOSAGE FORM: TABLET)
     Route: 065
  72. LACTASE [Suspect]
     Active Substance: LACTASE
     Indication: Product used for unknown indication
     Dosage: (DOSAGE FORM: NOT SPECIFIED) 1 DOSAGE FORM 1 EVERY 8 HOURS
     Route: 065
  73. LACTULOSE [Suspect]
     Active Substance: LACTULOSE
     Indication: Product used for unknown indication
     Dosage: 1.5 ML AT AN UNSPECIFIED FREQUENCY
     Route: 065
  74. LACTULOSE [Suspect]
     Active Substance: LACTULOSE
     Dosage: 1.5 ML AT AN UNSPECIFIED FREQUENCY
     Route: 048
  75. LACTULOSE [Suspect]
     Active Substance: LACTULOSE
     Dosage: 1.5 ML 1 EVERY 12 HOURS
     Route: 065
  76. LACTULOSE [Suspect]
     Active Substance: LACTULOSE
     Dosage: 1.5 ML, 2 EVERY 1 DAYS
     Route: 065
  77. LACTULOSE [Suspect]
     Active Substance: LACTULOSE
     Indication: Product used for unknown indication
     Dosage: (DOSAGE FORM: LIQUID ORAL) 1.5 ML 1 EVERY 12 HOURS
     Route: 048
  78. LOPERAMIDE [Suspect]
     Active Substance: LOPERAMIDE
     Indication: Product used for unknown indication
     Dosage: 1 DOSAGE FORM 1 EVERY 12 HOURS
     Route: 065
  79. LOPERAMIDE [Suspect]
     Active Substance: LOPERAMIDE
     Dosage: 1 DOSAGE FORM AT AN UNSPECIFIED FREQUENCY (DOSAGE FORM: TABLET)
     Route: 065
  80. LOPERAMIDE [Suspect]
     Active Substance: LOPERAMIDE
     Dosage: AT AN UNSPECIFIED DOSE AND FREQUENCY (DOSAGE FORM: TABLET)
     Route: 065
  81. LOPERAMIDE HYDROCHLORIDE [Suspect]
     Active Substance: LOPERAMIDE HYDROCHLORIDE
     Indication: Product used for unknown indication
     Dosage: 1 DOSAGE FORM 1 EVERY 12 HOURS
     Route: 065
  82. LOPERAMIDE HYDROCHLORIDE [Suspect]
     Active Substance: LOPERAMIDE HYDROCHLORIDE
     Dosage: 1 DOSAGE FORM, 2 EVERY 1 DAYS
     Route: 065
  83. MEPOLIZUMAB [Suspect]
     Active Substance: MEPOLIZUMAB
     Indication: Asthma
     Dosage: 100 MILLIGRAM AT AN UNSPECIFIED FREQUENCY
     Route: 058
  84. MEPOLIZUMAB [Suspect]
     Active Substance: MEPOLIZUMAB
     Dosage: 100 MILLIGRAM 1 EVERY 1 MONTH
     Route: 058
  85. METFORMIN [Suspect]
     Active Substance: METFORMIN HYDROCHLORIDE
     Indication: Product used for unknown indication
     Dosage: 1 DOSAGE FORM 1 EVERY 12 HOURS
     Route: 065
  86. METFORMIN HYDROCHLORIDE [Suspect]
     Active Substance: METFORMIN HYDROCHLORIDE
     Indication: Product used for unknown indication
     Dosage: 1 DOSAGE FORM 1 EVERY 12 HOURS
     Route: 065
  87. METFORMIN HYDROCHLORIDE [Suspect]
     Active Substance: METFORMIN HYDROCHLORIDE
     Dosage: 1 DOSAGE FORM, 2 EVERY 1 DAYS
     Route: 065
  88. METFORMIN HYDROCHLORIDE [Suspect]
     Active Substance: METFORMIN HYDROCHLORIDE
     Dosage: 1 DOSAGE FORM AT AN UNSPECIFIED FREQUENCY (DOSAGE FORM: TABLET)
     Route: 065
  89. METFORMIN HYDROCHLORIDE [Suspect]
     Active Substance: METFORMIN HYDROCHLORIDE
     Dosage: 2 DOSAGE FORM 1 EVERY 1 DAY (DOSAGE FORM: TABLET)
     Route: 065
  90. METHYLCOBALAMIN [Suspect]
     Active Substance: METHYLCOBALAMIN
     Indication: Product used for unknown indication
     Dosage: AT AN UNSPECIFIED DOSE AND FREQUENCY
     Route: 065
  91. MOMETASONE [Suspect]
     Active Substance: MOMETASONE
     Indication: Product used for unknown indication
     Dosage: 2 DOSAGE FORMS 1 EVERY 12 HOURS
     Route: 065
  92. MOMETASONE FUROATE [Suspect]
     Active Substance: MOMETASONE FUROATE
     Indication: Product used for unknown indication
     Dosage: 2 DOSAGE FORMS
     Route: 065
  93. MOMETASONE FUROATE [Suspect]
     Active Substance: MOMETASONE FUROATE
     Dosage: (DOSAGE FORM: NOT SPECIFIED) 2 DOSAGE FORMS 1 EVERY 12 HOURS
     Route: 065
  94. MOMETASONE FUROATE [Suspect]
     Active Substance: MOMETASONE FUROATE
     Dosage: 2 DOSAGE FORMS 1 EVERY 12 HOURS
     Route: 065
  95. MONTELUKAST [Suspect]
     Active Substance: MONTELUKAST SODIUM
     Indication: Product used for unknown indication
     Dosage: 1 DOSAGE FORM
     Route: 065
  96. MONTELUKAST [Suspect]
     Active Substance: MONTELUKAST SODIUM
     Dosage: (DOSAGE FORM: NOT SPECIFIED) 1 DOSAGE FORM 1 EVERY 12 HOURS
     Route: 065
  97. MONTELUKAST [Suspect]
     Active Substance: MONTELUKAST SODIUM
     Dosage: 1 DOSAGE FORM 1 EVERY 1 DAY
     Route: 065
  98. MONTELUKAST SODIUM [Suspect]
     Active Substance: MONTELUKAST SODIUM
     Indication: Asthma
     Dosage: 1 DOSAGE FORM 1 EVERY 1 DAY
     Route: 065
  99. MONTELUKAST SODIUM [Suspect]
     Active Substance: MONTELUKAST SODIUM
     Dosage: 1 DOSAGE FORM 1 EVERY 12 HOURS
     Route: 065
  100. NEOMYCIN SULFATE [Suspect]
     Active Substance: NEOMYCIN SULFATE
     Indication: Product used for unknown indication
     Dosage: AT AN UNSPECIFIED DOSE AND FREQUENCY
     Route: 065
  101. NITROFURANTOIN [Suspect]
     Active Substance: NITROFURANTOIN
     Indication: Product used for unknown indication
     Dosage: (DOSAGE FORM: NOT SPECIFIED) 1 DOSAGE FORM 1 EVERY 12 HOURS
     Route: 065
  102. NITROFURANTOIN [Suspect]
     Active Substance: NITROFURANTOIN
     Dosage: 1 DOSAGE FORM 2 EVERY 1 DAYS
     Route: 065
  103. NOVORAPID [Suspect]
     Active Substance: INSULIN ASPART
     Indication: Product used for unknown indication
     Dosage: AT AN UNSPECIFIED DOSE AND FREQUENCY
     Route: 058
  104. NOVORAPID [Suspect]
     Active Substance: INSULIN ASPART
     Dosage: (DOSAGE FORM: SOLUTION SUBCUTANEOUS) 3 DOSAGE FORMS 1 EVERY 1 DAY
     Route: 042
  105. NOVORAPID [Suspect]
     Active Substance: INSULIN ASPART
     Dosage: 3 DOSAGE FORMS 1 EVERY 24 HOURS
     Route: 042
  106. NUCALA [Suspect]
     Active Substance: MEPOLIZUMAB
     Indication: Product used for unknown indication
     Dosage: 100 MILLIGRAM
     Route: 058
  107. NUCALA [Suspect]
     Active Substance: MEPOLIZUMAB
     Dosage: 2 DOSAGE FORMS 1 EVERY 12 HOURS
     Route: 065
  108. PEDIAPRED [Suspect]
     Active Substance: PREDNISOLONE SODIUM PHOSPHATE
     Indication: Product used for unknown indication
     Dosage: 2 DOSAGE FORMS 1 EVERY 1 DAY
     Route: 048
  109. PEDIAPRED [Suspect]
     Active Substance: PREDNISOLONE SODIUM PHOSPHATE
     Dosage: 3 DOSAGE FORMS 1 EVERY 1 DAY
     Route: 065
  110. PEDIAPRED [Suspect]
     Active Substance: PREDNISOLONE SODIUM PHOSPHATE
     Dosage: 4 DOSAGE FORMS 1 EVERY 1 DAY
     Route: 048
  111. PEDIAPRED [Suspect]
     Active Substance: PREDNISOLONE SODIUM PHOSPHATE
     Dosage: 1 DOSAGE FORM
     Route: 065
  112. PEDIAPRED [Suspect]
     Active Substance: PREDNISOLONE SODIUM PHOSPHATE
     Dosage: 2 DOSAGE FORMS
     Route: 065
  113. PEDIAPRED [Suspect]
     Active Substance: PREDNISOLONE SODIUM PHOSPHATE
     Dosage: 3 DOSAGE FORMS
     Route: 065
  114. PEDIAPRED [Suspect]
     Active Substance: PREDNISOLONE SODIUM PHOSPHATE
     Dosage: 4 DOSAGE FORMS
     Route: 065
  115. PEDIAPRED [Suspect]
     Active Substance: PREDNISOLONE SODIUM PHOSPHATE
     Dosage: 1 EVERY 1 DAY
     Route: 065
  116. PEDIAPRED [Suspect]
     Active Substance: PREDNISOLONE SODIUM PHOSPHATE
     Dosage: UNK
     Route: 048
  117. PEDIAPRED [Suspect]
     Active Substance: PREDNISOLONE SODIUM PHOSPHATE
     Indication: Product used for unknown indication
     Dosage: 1 DOSAGE FORM 1 EVERY 1 DAY
     Route: 065
  118. PINAVERIUM BROMIDE [Suspect]
     Active Substance: PINAVERIUM BROMIDE
     Indication: Product used for unknown indication
     Dosage: UNK
     Route: 065
  119. PINAVERIUM BROMIDE [Suspect]
     Active Substance: PINAVERIUM BROMIDE
     Indication: Product used for unknown indication
     Dosage: UNK
     Route: 065
  120. NITROFURANTOIN [Suspect]
     Active Substance: NITROFURANTOIN
     Indication: Product used for unknown indication
     Dosage: (PMS-NITROFURANTOIN BID) 1 DOSAGE FORM 1 EVERY 1 DAY
     Route: 065
  121. NITROFURANTOIN [Suspect]
     Active Substance: NITROFURANTOIN
     Dosage: (PMS-NITROFURANTOIN BID) 1 DOSAGE FORM 1 EVERY 12 HOURS
     Route: 065
  122. PREDNISOLONE SODIUM PHOSPHATE [Suspect]
     Active Substance: PREDNISOLONE SODIUM PHOSPHATE
     Indication: Product used for unknown indication
     Dosage: 2 DOSAGE FORMS 1 EVERY 1 DAY
     Route: 065
  123. PREDNISOLONE SODIUM PHOSPHATE [Suspect]
     Active Substance: PREDNISOLONE SODIUM PHOSPHATE
     Dosage: 3 DOSAGE FORMS 1 EVERY 1 DAY
     Route: 065
  124. PREDNISOLONE SODIUM PHOSPHATE [Suspect]
     Active Substance: PREDNISOLONE SODIUM PHOSPHATE
     Dosage: 4 DOSAGE FORMS 1 EVERY 1 DAY
     Route: 065
  125. PREDNISOLONE SODIUM PHOSPHATE [Suspect]
     Active Substance: PREDNISOLONE SODIUM PHOSPHATE
     Dosage: 1 DOSAGE FORM 1 EVERY 1 DAY
     Route: 065
  126. PREDNISOLONE SODIUM PHOSPHATE [Suspect]
     Active Substance: PREDNISOLONE SODIUM PHOSPHATE
     Dosage: 1 DOSAGE FORM
     Route: 065
  127. PREDNISOLONE SODIUM PHOSPHATE [Suspect]
     Active Substance: PREDNISOLONE SODIUM PHOSPHATE
     Dosage: (THERAPY DURATION: 30 DAYS)
     Route: 065
  128. PREDNISOLONE SODIUM PHOSPHATE [Suspect]
     Active Substance: PREDNISOLONE SODIUM PHOSPHATE
     Dosage: 5 GRAMS
     Route: 065
  129. PREDNISOLONE SODIUM PHOSPHATE [Suspect]
     Active Substance: PREDNISOLONE SODIUM PHOSPHATE
     Dosage: 100 MILLIGRAMS
     Route: 058
  130. PREDNISOLONE SODIUM PHOSPHATE [Suspect]
     Active Substance: PREDNISOLONE SODIUM PHOSPHATE
     Dosage: 50 INTERNATIONAL UNIT (IU), 1 EVERY 1 DAY
     Route: 065
  131. PREDNISOLONE SODIUM PHOSPHATE [Suspect]
     Active Substance: PREDNISOLONE SODIUM PHOSPHATE
     Dosage: 1 ML
     Route: 065
  132. PREDNISONE [Suspect]
     Active Substance: PREDNISONE
     Indication: Product used for unknown indication
     Dosage: 1 DOSAGE FORM 1 EVERY 1 DAY
     Route: 065
  133. PREDNISONE [Suspect]
     Active Substance: PREDNISONE
     Dosage: 2 DOSAGE FORMS 1 EVERY 1 DAY
     Route: 065
  134. PREDNISONE [Suspect]
     Active Substance: PREDNISONE
     Dosage: 1 EVERY 1 DAY
     Route: 065
  135. PREDNISONE [Suspect]
     Active Substance: PREDNISONE
     Dosage: 3 DOSAGE FORMS
     Route: 065
  136. PREDNISONE [Suspect]
     Active Substance: PREDNISONE
     Dosage: 2 DOSAGE FORMS
     Route: 065
  137. PREDNISONE [Suspect]
     Active Substance: PREDNISONE
     Dosage: 1 DOSAGE FORM
     Route: 065
  138. PREDNISONE [Suspect]
     Active Substance: PREDNISONE
     Dosage: 4 DOSAGE FORM
     Route: 065
  139. PREDNISONE [Suspect]
     Active Substance: PREDNISONE
     Dosage: 3 DOSAGE FORMS 1 EVERY 1 DAY
     Route: 065
  140. PREDNISONE [Suspect]
     Active Substance: PREDNISONE
     Indication: Product used for unknown indication
     Dosage: (DOSAGE FORM: NOT SPECIFIED) 4 DOSAGE FORMS 1 EVERY 1 DAY
     Route: 065
  141. QUINAPRIL [Suspect]
     Active Substance: QUINAPRIL
     Indication: Product used for unknown indication
     Dosage: 1 DOSAGE FORM 1 EVERY 1 DAY
     Route: 065
  142. QUINAPRIL [Suspect]
     Active Substance: QUINAPRIL
     Dosage: 1 DOSAGE FORM 1 EVERY 12 HOURS
     Route: 065
  143. QUINAPRIL HYDROCHLORIDE [Suspect]
     Active Substance: QUINAPRIL HYDROCHLORIDE
     Indication: Product used for unknown indication
     Dosage: 1 DOSAGE FORM 1 EVERY 1 DAY
     Route: 065
  144. QUINAPRIL HYDROCHLORIDE [Suspect]
     Active Substance: QUINAPRIL HYDROCHLORIDE
     Dosage: 1 DOSAGE FORM
     Route: 065
  145. QUINAPRIL HYDROCHLORIDE [Suspect]
     Active Substance: QUINAPRIL HYDROCHLORIDE
     Indication: Product used for unknown indication
     Dosage: 1 DOSAGE FORM 1 EVERY 1 DAY
     Route: 065
  146. LACTULOSE [Suspect]
     Active Substance: LACTULOSE
     Indication: Product used for unknown indication
     Dosage: 1.5 ML 1 EVERY 12 HOURS
     Route: 048
  147. ALBUTEROL [Suspect]
     Active Substance: ALBUTEROL
     Indication: Product used for unknown indication
     Dosage: (DOSAGE FORM: NOT SPECIFIED) AT AN UNSPECIFIED FREQUENCY
     Route: 065
  148. GLYCOPYRROLATE [Suspect]
     Active Substance: GLYCOPYRROLATE
     Indication: Product used for unknown indication
     Dosage: 1 DOSAGE FORM 1 EVERY 24 HOURS
     Route: 065
  149. SEMAGLUTIDE [Suspect]
     Active Substance: SEMAGLUTIDE
     Indication: Product used for unknown indication
     Dosage: 1.25 MILLIGRAM 1 EVERY 1 WEEK
     Route: 042
  150. SEMAGLUTIDE [Suspect]
     Active Substance: SEMAGLUTIDE
     Dosage: 125 ML 1 EVERY 1 WEEK
     Route: 042
  151. SEMAGLUTIDE [Suspect]
     Active Substance: SEMAGLUTIDE
     Dosage: 1 DOSAGE FORM 1 EVERY 1 WEEK
     Route: 058
  152. SEMAGLUTIDE [Suspect]
     Active Substance: SEMAGLUTIDE
     Indication: Product used for unknown indication
     Dosage: (DOSAGE FORM: SOLUTION SUBCUTANEOUS) 1 EVERY 1 WEEK
     Route: 058
  153. SEMAGLUTIDE [Suspect]
     Active Substance: SEMAGLUTIDE
     Dosage: (DOSAGE FORM: NOT SPECIFIED) 1.25 MILLIGRAM 1 EVERY 1 WEEK
     Route: 065
  154. SILDENAFIL CITRATE [Suspect]
     Active Substance: SILDENAFIL CITRATE
     Indication: Product used for unknown indication
     Dosage: 1.0 DOSAGE FORM AT AN UNSPECIFIED FREQUENCY
     Route: 065
  155. ATROVENT [Suspect]
     Active Substance: IPRATROPIUM BROMIDE
     Indication: Product used for unknown indication
     Dosage: (DOSAGE FORM: NOT SPECIFIED) AT AN UNSPECIFIED DOSE AND FREQUENCY
     Route: 065
  156. DILTIAZEM [Suspect]
     Active Substance: DILTIAZEM
     Indication: Product used for unknown indication
     Dosage: 2 DOSAGE FORMS 1 EVERY 1 DAYS
     Route: 042
  157. DILTIAZEM [Suspect]
     Active Substance: DILTIAZEM
     Dosage: 1 DOSAGE FORMS 1 EVERY 12 HOURS
     Route: 042
  158. NITROGLYCERIN [Suspect]
     Active Substance: NITROGLYCERIN
     Indication: Product used for unknown indication
     Dosage: (DOSAGE FORM: NOT SPECIFIED) 1 DOSAGE FORMS AT UNSPECIFIED FREQUENCY
     Route: 065
  159. AZITHROMYCIN ANHYDROUS [Suspect]
     Active Substance: AZITHROMYCIN ANHYDROUS
     Indication: Product used for unknown indication
     Dosage: (DOSAGE FORM: NOT SPECIFIED) 3 DOSAGE FORMS AT UNSPECIFIED FREQUENCY
     Route: 065
  160. SINGULAIR [Suspect]
     Active Substance: MONTELUKAST SODIUM
     Indication: Asthma
     Dosage: (DOSAGE FORMS: NOT SPECIFIED)
     Route: 065
  161. SINGULAIR [Suspect]
     Active Substance: MONTELUKAST SODIUM
     Dosage: 1 DOSAGE FORM, 2 EVERY 1 DAYS
     Route: 065
  162. SINGULAIR [Suspect]
     Active Substance: MONTELUKAST SODIUM
     Dosage: 1 DOSAGE FORM, 1 EVERY 1 DAYS (DOSAGE FORM: NOT SPECIFIED)
     Route: 065
  163. THEOPHYLLINE [Suspect]
     Active Substance: THEOPHYLLINE
     Indication: Product used for unknown indication
     Dosage: (DOSAGE FORMS: NOT SPECIFIED) AT AN UNSPECIFIED DOSE AND FREQUENCY
     Route: 065
  164. TRESIBA [Suspect]
     Active Substance: INSULIN DEGLUDEC
     Indication: Product used for unknown indication
     Dosage: 50 IU 1 EVERY 1 DAYS
     Route: 058
  165. UNIPHYL [Suspect]
     Active Substance: THEOPHYLLINE ANHYDROUS
     Indication: Product used for unknown indication
     Dosage: UNPECIFIED DOSE AND FREQUENCY (DOSAGE FORM: TABLET (EXTENDED RELEASE)
     Route: 065
  166. NASONEX [Suspect]
     Active Substance: MOMETASONE FUROATE
     Indication: Product used for unknown indication
     Dosage: 2.0 DOSAGE FORMS 1 EVERY 12 HOURS (DOSAGE FORM: NASAL SPRAY, SUSPENSION)
     Route: 065
  167. NASONEX [Suspect]
     Active Substance: MOMETASONE FUROATE
     Dosage: 2.0 DOSAGE FORMS 2 EVERY 1 DAYS (DOSAGE FORM: NASAL SPRAY, SUSPENSION)
     Route: 065
  168. NASONEX [Suspect]
     Active Substance: MOMETASONE FUROATE
     Dosage: 2.0 DOSAGE FORMS AT AN UNSPECIFIED FREQUENCY (DOSAGE FORM: NASAL SPRAY, SUSPENSION)
     Route: 065
  169. NASONEX [Suspect]
     Active Substance: MOMETASONE FUROATE
     Dosage: AT AN UNSPECIFIED DOSE AND FREQUENCY (DOSAGE FORM: SPRAY, METERED DOSE)
     Route: 065
  170. TIOTROPIUM BROMIDE MONOHYDRATE [Suspect]
     Active Substance: TIOTROPIUM BROMIDE MONOHYDRATE
     Indication: Product used for unknown indication
     Dosage: DOSAGE FORM: NOT SPECIFIED,  UNSPECIFIED DOSE AND FREQUENCY
     Route: 065
  171. HYDROCORTISONE ACETATE [Suspect]
     Active Substance: HYDROCORTISONE ACETATE
     Indication: Product used for unknown indication
     Dosage: AT AN UNSPECIFIED DOSE AND FREQUENCY
     Route: 065
  172. INSULIN ASPART [Suspect]
     Active Substance: INSULIN ASPART
     Indication: Product used for unknown indication
     Dosage: 3 ML PENFILL CATRIDGE, AT AN UNSPECIFIED DOSE AND FREQUENCY (DOSAGE FORM: SUSPENSION SUBCUTANEOUS)
     Route: 065
  173. NOVORAPID [Suspect]
     Active Substance: INSULIN ASPART
     Indication: Product used for unknown indication
     Dosage: 3 ML PREFILLED PEN, 3.0 DOSAGE FORMS 1 EVERY 1 DAY (DOSAGE FORM: SOLUTION SUBCUTANEOUS)
     Route: 042
  174. VENTOLIN [Suspect]
     Active Substance: ALBUTEROL SULFATE
     Indication: Product used for unknown indication
     Dosage: AT AN UNSPECIFIED DOSE AND FREQUENCY (DOSAGE FORM: NOT SPECIFIED)
     Route: 065
  175. VITAMIN B12 [Suspect]
     Active Substance: CYANOCOBALAMIN
     Indication: Product used for unknown indication
     Dosage: 1.0 ML AT AN UNSPECIFIED FREQUENCY
     Route: 042
  176. VITAMIN B12 [Suspect]
     Active Substance: CYANOCOBALAMIN
     Dosage: 1.0 ML 1 EVERY 1 MONTH (DOSAGE FORM: NOT SPECIFIED)
     Route: 042

REACTIONS (32)
  - Angina pectoris [Unknown]
  - Appetite disorder [Unknown]
  - Asthma [Unknown]
  - Chest discomfort [Unknown]
  - Chest pain [Unknown]
  - Cough [Unknown]
  - Depressed mood [Unknown]
  - Depressive symptom [Unknown]
  - Dyspnoea exertional [Unknown]
  - Fall [Unknown]
  - Flank pain [Unknown]
  - Heart sounds [Unknown]
  - Influenza [Unknown]
  - Injury [Unknown]
  - Loss of personal independence in daily activities [Unknown]
  - Lower respiratory tract infection [Unknown]
  - Nasal congestion [Unknown]
  - Nasopharyngitis [Unknown]
  - Productive cough [Unknown]
  - Prolonged expiration [Unknown]
  - Rales [Unknown]
  - Respiration abnormal [Unknown]
  - Rhinorrhoea [Unknown]
  - Sleep disorder due to a general medical condition [Unknown]
  - Stress [Unknown]
  - Upper respiratory tract infection [Unknown]
  - Weight decreased [Unknown]
  - Wheezing [Unknown]
  - Pyrexia [Unknown]
  - Dyspnoea [Unknown]
  - Insomnia [Unknown]
  - Malaise [Unknown]
